FAERS Safety Report 8803430 (Version 1)
Quarter: 2012Q4

REPORT INFORMATION
  Report Type: 
  Country: CH (occurrence: CH)
  Receive Date: 20120924
  Receipt Date: 20120924
  Transmission Date: 20130627
  Serious: Yes (Hospitalization)
  Sender: FDA-Public Use
  Company Number: CH-MPIJNJ-2012-06465

PATIENT

DRUGS (14)
  1. VELCADE [Suspect]
     Indication: MULTIPLE MYELOMA
     Dosage: 1.3 mg/m2, UNK
     Route: 058
     Dates: start: 20110620, end: 20110908
  2. VELCADE [Suspect]
     Dosage: 1.3 UNK, UNK
     Route: 058
     Dates: start: 20120416, end: 20120507
  3. THALIDOMIDE [Suspect]
     Indication: MULTIPLE MYELOMA
     Dosage: 200 mg, UNK
     Route: 048
     Dates: start: 20110620, end: 20110908
  4. THALIDOMIDE [Suspect]
     Dosage: 200 mg, UNK
     Route: 048
     Dates: start: 20120416, end: 20120509
  5. MELPHALAN [Suspect]
     Dosage: 200 mg/m2, UNK
     Route: 065
     Dates: start: 201109, end: 201201
  6. DEXAMETHASONE [Concomitant]
     Indication: PROPHYLAXIS
     Dosage: 20 mg, UNK
     Route: 048
     Dates: start: 20110626, end: 20110908
  7. DEXAMETHASONE [Concomitant]
     Dosage: 20 UNK, UNK
     Route: 048
     Dates: start: 20120416, end: 20120507
  8. ZOMETA [Concomitant]
     Dosage: UNK
     Dates: start: 201107
  9. VALTREX [Concomitant]
     Dosage: UNK
     Route: 048
  10. NOPIL [Concomitant]
     Dosage: 800 mg, UNK
     Route: 048
  11. NOPIL [Concomitant]
     Dosage: 160 mg, UNK
     Route: 048
  12. DIFLUCAN [Concomitant]
     Route: 048
  13. PANTOZOL [Concomitant]
  14. MARCOUMAR [Concomitant]
     Dosage: UNK
     Route: 048

REACTIONS (7)
  - Palpitations [Unknown]
  - Dizziness [Unknown]
  - Cardiac disorder [Unknown]
  - Atrial flutter [Recovered/Resolved]
  - Pneumonitis [Recovering/Resolving]
  - Bradycardia [Unknown]
  - Off label use [Unknown]
